FAERS Safety Report 8485026-3 (Version None)
Quarter: 2012Q2

REPORT INFORMATION
  Report Type: 
  Country: None (occurrence: None)
  Receive Date: 20120625
  Receipt Date: 20120611
  Transmission Date: 20120825
  Serious: Yes (Other)
  Sender: FDA-Public Use
  Company Number: JPI-P-021726

PATIENT
  Age: 41 Year
  Sex: Female
  Weight: 58.9676 kg

DRUGS (6)
  1. XYREM [Suspect]
     Indication: NARCOLEPSY
     Dosage: 9 GM (4.5 GM, 2 IN 1 D)
     Dates: start: 20090101
  2. AMPHETAMINE, DEXTROPHETAMINE MIXED SALTS [Concomitant]
  3. BUPROPION HYDROCHLORIDE [Concomitant]
  4. GABAPENTIN [Concomitant]
  5. METHYLPHENIDATE [Suspect]
     Indication: NARCOLEPSY
     Dosage: UNKNOWN
  6. ATENOLOL [Concomitant]

REACTIONS (15)
  - ANXIETY [None]
  - MALAISE [None]
  - ANGER [None]
  - IMPATIENCE [None]
  - IRRITABILITY [None]
  - INITIAL INSOMNIA [None]
  - FATIGUE [None]
  - VIOLENCE-RELATED SYMPTOM [None]
  - DRUG INEFFECTIVE [None]
  - DEPRESSION [None]
  - SOMNOLENCE [None]
  - HOMICIDAL IDEATION [None]
  - DRUG TOLERANCE [None]
  - VOMITING [None]
  - HYPERSOMNIA [None]
